FAERS Safety Report 12856421 (Version 3)
Quarter: 2017Q1

REPORT INFORMATION
  Report Type: Report from Study
  Country: None (occurrence: US)
  Receive Date: 20161018
  Receipt Date: 20170310
  Transmission Date: 20170428
  Serious: Yes (Hospitalization)
  Sender: FDA-Public Use
  Company Number: US-ABBVIE-16K-163-1717131-00

PATIENT
  Age: 72 Year
  Sex: Female
  Weight: 92.16 kg

DRUGS (9)
  1. LEVOTHYROXINE. [Concomitant]
     Active Substance: LEVOTHYROXINE
     Indication: HYPOTHYROIDISM
  2. POTASSIUM CHLORIDE. [Concomitant]
     Active Substance: POTASSIUM CHLORIDE
     Indication: MINERAL SUPPLEMENTATION
  3. METHIMAZOLE. [Concomitant]
     Active Substance: METHIMAZOLE
     Indication: THYROID DISORDER
  4. METHOTREXATE. [Concomitant]
     Active Substance: METHOTREXATE
     Indication: RHEUMATOID ARTHRITIS
  5. PLAQUENIL [Concomitant]
     Active Substance: HYDROXYCHLOROQUINE SULFATE
     Indication: RHEUMATOID ARTHRITIS
  6. FOLIC ACID. [Concomitant]
     Active Substance: FOLIC ACID
     Indication: VITAMIN SUPPLEMENTATION
  7. HUMIRA [Suspect]
     Active Substance: ADALIMUMAB
     Indication: RHEUMATOID ARTHRITIS
     Route: 058
     Dates: start: 20160401
  8. FUROSEMIDE. [Concomitant]
     Active Substance: FUROSEMIDE
     Indication: FLUID RETENTION
  9. LEFLUNOMIDE. [Concomitant]
     Active Substance: LEFLUNOMIDE
     Indication: RHEUMATOID ARTHRITIS

REACTIONS (6)
  - Sinusitis [Recovering/Resolving]
  - Intervertebral disc degeneration [Recovering/Resolving]
  - Bursitis [Recovering/Resolving]
  - Injection site urticaria [Recovering/Resolving]
  - Dyspepsia [Recovering/Resolving]
  - Heart rate irregular [Recovering/Resolving]

NARRATIVE: CASE EVENT DATE: 2016
